FAERS Safety Report 19263266 (Version 3)
Quarter: 2021Q2

REPORT INFORMATION
  Report Type: Spontaneous
  Country: US (occurrence: US)
  Receive Date: 20210517
  Receipt Date: 20210612
  Transmission Date: 20210717
  Serious: Yes (Other)
  Sender: FDA-Public Use
  Company Number: US-TEVA-2021-US-1904219

PATIENT
  Age: 57 Year
  Sex: Female
  Weight: 89.44 kg

DRUGS (7)
  1. CLONAZEPAM. [Concomitant]
     Active Substance: CLONAZEPAM
  2. LITHIUM. [Concomitant]
     Active Substance: LITHIUM
  3. AJOVY [Suspect]
     Active Substance: FREMANEZUMAB-VFRM
     Indication: MIGRAINE
     Dosage: 225MG/1.5ML
     Route: 065
     Dates: start: 202102
  4. THORAZONE [Concomitant]
  5. DEPAKOTE [Concomitant]
     Active Substance: DIVALPROEX SODIUM
  6. AJOVY [Suspect]
     Active Substance: FREMANEZUMAB-VFRM
     Dosage: 225MG/1.5ML
     Route: 065
     Dates: start: 20210328
  7. SPRIOROLACTONE [Concomitant]

REACTIONS (4)
  - Bronchiolitis [Recovered/Resolved]
  - Dyspnoea [Recovered/Resolved]
  - Bronchospasm [Recovered/Resolved]
  - Wheezing [Recovered/Resolved]

NARRATIVE: CASE EVENT DATE: 202102
